FAERS Safety Report 21409466 (Version 1)
Quarter: 2022Q4

REPORT INFORMATION
  Report Type: Spontaneous
  Country: US (occurrence: US)
  Receive Date: 20221004
  Receipt Date: 20221004
  Transmission Date: 20230113
  Serious: Yes (Other)
  Sender: FDA-Public Use
  Company Number: US-AMGEN-USASP2022167395

PATIENT
  Age: 88 Year
  Sex: Female

DRUGS (1)
  1. KANJINTI [Suspect]
     Active Substance: TRASTUZUMAB-ANNS
     Indication: HER2 positive breast cancer
     Dosage: 420 MILLIGRAM, Q3WK
     Route: 040
     Dates: start: 202201

REACTIONS (3)
  - Atrial fibrillation [Unknown]
  - Blood pressure systolic increased [Unknown]
  - Aortic dilatation [Unknown]

NARRATIVE: CASE EVENT DATE: 20220101
